FAERS Safety Report 25131668 (Version 1)
Quarter: 2025Q1

REPORT INFORMATION
  Report Type: Spontaneous
  Country: ES (occurrence: ES)
  Receive Date: 20250327
  Receipt Date: 20250327
  Transmission Date: 20250409
  Serious: Yes (Other)
  Sender: SANOFI AVENTIS
  Company Number: ES-BIOVITRUM-2025-ES-003964

PATIENT
  Sex: Male

DRUGS (1)
  1. EFANESOCTOCOG ALFA [Suspect]
     Active Substance: EFANESOCTOCOG ALFA
     Indication: Product used for unknown indication
     Dosage: 50 IU/KG, QW
     Route: 042

REACTIONS (2)
  - Facial paralysis [Recovering/Resolving]
  - Herpes zoster [Recovering/Resolving]
